FAERS Safety Report 9022146 (Version 1)
Quarter: 2013Q1

REPORT INFORMATION
  Report Type: Spontaneous
  Country: US (occurrence: US)
  Receive Date: 20130118
  Receipt Date: 20130118
  Transmission Date: 20140127
  Serious: Yes (Other)
  Sender: FDA-Public Use
  Company Number: US-BAYER-2013-005402

PATIENT
  Sex: Male

DRUGS (1)
  1. ALEVE CAPLET/TABLET,MIDOL EXTENDED RELIEF CAPLET [Suspect]
     Indication: BACK PAIN
     Dosage: TOOK SEVERAL PILLS
     Route: 048

REACTIONS (6)
  - Dermatitis allergic [Recovered/Resolved]
  - Pain of skin [Recovered/Resolved]
  - Dysphagia [Recovered/Resolved]
  - Urticaria [None]
  - Oedema mouth [None]
  - Swollen tongue [None]
